FAERS Safety Report 5398426-5 (Version None)
Quarter: 2007Q3

REPORT INFORMATION
  Report Type: 
  Country: None (occurrence: None)
  Receive Date: 20070726
  Receipt Date: 20070226
  Transmission Date: 20080115
  Serious: No
  Sender: FDA-Public Use
  Company Number: US-AMGEN-KDL212948

PATIENT
  Sex: Male

DRUGS (13)
  1. PROCRIT [Suspect]
     Indication: HIV INFECTION
     Dates: start: 20060201
  2. NORVIR [Concomitant]
  3. FUZEON [Concomitant]
  4. MYAMBUTOL [Concomitant]
  5. ETHAMBUTOL HYDROCHLORIDE [Concomitant]
  6. BACTRIM [Concomitant]
  7. MORPHINE [Concomitant]
  8. OXYCODONE HCL [Concomitant]
  9. AZITHROMYCIN [Concomitant]
  10. FERROUS GLUCONATE [Concomitant]
  11. FOLIC ACID [Concomitant]
  12. VITAMIN B-12 [Concomitant]
  13. ZINC [Concomitant]

REACTIONS (2)
  - OEDEMA PERIPHERAL [None]
  - PAIN IN EXTREMITY [None]
